FAERS Safety Report 9557750 (Version 3)
Quarter: 2013Q4

REPORT INFORMATION
  Report Type: Spontaneous
  Country: DK (occurrence: DK)
  Receive Date: 20130926
  Receipt Date: 20131111
  Transmission Date: 20140711
  Serious: Yes (Other)
  Sender: FDA-Public Use
  Company Number: PHHY2013DK103027

PATIENT
  Age: 70 Year
  Sex: Male

DRUGS (6)
  1. SIMVASTATIN SANDOZ [Suspect]
     Indication: BLOOD CHOLESTEROL INCREASED
     Dosage: 20 MG, QD
     Route: 048
     Dates: start: 20110101
  2. SIMVASTATIN SANDOZ [Suspect]
     Dosage: 10 MG, QD
     Route: 048
     Dates: start: 20130101
  3. PROGRAF [Concomitant]
     Dosage: 1 MG, BID
  4. IMUREL [Concomitant]
     Dosage: 50 MG, QD
  5. METOPROLOL SUCCINATE [Concomitant]
     Dosage: 100 MG, BID
     Route: 048
  6. CORODIL [Concomitant]
     Dosage: 5 MG, BID
     Route: 048

REACTIONS (4)
  - Eye haemorrhage [Recovered/Resolved]
  - Vitreous detachment [Unknown]
  - Retinal tear [Unknown]
  - Visual impairment [Unknown]
